APPROVED DRUG PRODUCT: KLONOPIN
Active Ingredient: CLONAZEPAM
Strength: 0.125MG
Dosage Form/Route: TABLET;ORAL
Application: N017533 | Product #005
Applicant: CHEPLAPHARM ARZNEIMITTEL GMBH
Approved: Apr 9, 1997 | RLD: No | RS: No | Type: DISCN